FAERS Safety Report 4756430-1 (Version None)
Quarter: 2005Q3

REPORT INFORMATION
  Report Type: 
  Country: None (occurrence: None)
  Receive Date: 20050830
  Receipt Date: 20050622
  Transmission Date: 20060218
  Serious: No
  Sender: FDA-Public Use
  Company Number: US-GLAXOSMITHKLINE-A0563818A

PATIENT
  Age: 87 Year
  Sex: Female

DRUGS (5)
  1. WELLBUTRIN XL [Suspect]
     Indication: DECREASED APPETITE
     Dosage: 150MG PER DAY
     Route: 048
     Dates: start: 20050510
  2. TRAZODONE [Concomitant]
  3. ZOLOFT [Concomitant]
  4. HALCION [Concomitant]
  5. MEGACE [Concomitant]

REACTIONS (2)
  - CRYING [None]
  - DEPRESSION [None]
